FAERS Safety Report 6305846-0 (Version None)
Quarter: 2009Q3

REPORT INFORMATION
  Report Type: 
  Country: None (occurrence: None)
  Receive Date: 20090812
  Receipt Date: 20090805
  Transmission Date: 20100115
  Serious: Yes (Other)
  Sender: FDA-Public Use
  Company Number: US-BRISTOL-MYERS SQUIBB COMPANY-14086748

PATIENT
  Age: 45 Year
  Sex: Male
  Weight: 80 kg

DRUGS (2)
  1. EFAVIRENZ [Suspect]
     Route: 048
     Dates: start: 20030224, end: 20030225
  2. VORICONAZOLE [Concomitant]
     Dosage: 14FEB03:DAY1:400MG 2/1D 15FEB03:DAY2:200MG 2/D 16FEB03:DAY3:200MG 2/D
     Route: 048
     Dates: start: 20030214, end: 20030216

REACTIONS (1)
  - ATRIOVENTRICULAR BLOCK [None]
